FAERS Safety Report 14938298 (Version 1)
Quarter: 2018Q2

REPORT INFORMATION
  Report Type: Spontaneous
  Country: FI (occurrence: FI)
  Receive Date: 20180525
  Receipt Date: 20180525
  Transmission Date: 20180711
  Serious: Yes (Hospitalization, Other)
  Sender: FDA-Public Use
  Company Number: FI-AUROBINDO-AUR-APL-2018-028093

PATIENT
  Age: 30 Year
  Sex: Female

DRUGS (3)
  1. OLANZAPINE. [Suspect]
     Active Substance: OLANZAPINE
     Indication: BIPOLAR I DISORDER
     Dosage: 15 MILLIGRAM, DAILY, AT NIGHT
     Route: 065
  2. PANACOD [Interacting]
     Active Substance: ACETAMINOPHEN\CODEINE PHOSPHATE
     Indication: BACK PAIN
     Dosage: 1 UNK, DAILY
     Route: 065
     Dates: start: 2017
  3. LITHIUM. [Interacting]
     Active Substance: LITHIUM
     Indication: BIPOLAR DISORDER
     Dosage: 1050 MILLIGRAM, DAILY
     Route: 065

REACTIONS (6)
  - Drug interaction [Unknown]
  - Intervertebral disc protrusion [Unknown]
  - Increased appetite [Unknown]
  - Mania [Recovered/Resolved]
  - Weight increased [Unknown]
  - Intercepted drug prescribing error [Unknown]

NARRATIVE: CASE EVENT DATE: 201705
